FAERS Safety Report 9252869 (Version 1)
Quarter: 2013Q2

REPORT INFORMATION
  Report Type: Spontaneous
  Country: US (occurrence: US)
  Receive Date: 20130424
  Receipt Date: 20130424
  Transmission Date: 20140414
  Serious: Yes (Other)
  Sender: FDA-Public Use
  Company Number: US-BRISTOL-MYERS SQUIBB COMPANY-18790568

PATIENT
  Sex: Female

DRUGS (1)
  1. KENALOG INJ [Suspect]
     Indication: PAIN
     Dates: start: 201008, end: 20110131

REACTIONS (4)
  - Overdose [Unknown]
  - Cushing^s syndrome [Unknown]
  - Addison^s disease [Unknown]
  - Adrenal insufficiency [Unknown]
